FAERS Safety Report 10995875 (Version 2)
Quarter: 2016Q2

REPORT INFORMATION
  Report Type: Report from Study
  Country: DK (occurrence: DK)
  Receive Date: 20150407
  Receipt Date: 20160613
  Transmission Date: 20160815
  Serious: Yes (Hospitalization)
  Sender: FDA-Public Use
  Company Number: PHHO2015DK005398

PATIENT
  Age: 73 Year
  Sex: Male
  Weight: 70 kg

DRUGS (10)
  1. MAREVAN [Concomitant]
     Active Substance: WARFARIN SODIUM
     Indication: AORTIC VALVOTOMY
     Dosage: QD
     Route: 065
  2. ALISKIREN [Suspect]
     Active Substance: ALISKIREN
     Indication: CARDIAC FAILURE
     Dosage: 150 MG, UNK
     Route: 048
     Dates: start: 20121114
  3. ALISKIREN [Suspect]
     Active Substance: ALISKIREN
     Dosage: 300 MG, UNK
     Route: 048
     Dates: end: 20140407
  4. PREDNISOLONE. [Suspect]
     Active Substance: PREDNISOLONE
     Indication: DERMATITIS BULLOUS
     Dosage: 25 MG (X1) QD
     Route: 048
     Dates: start: 20141217
  5. AZATHIOPRIN [Concomitant]
     Active Substance: AZATHIOPRINE
     Indication: DERMATITIS BULLOUS
     Dosage: 5 MG, BID
     Route: 065
  6. ENALAPRIL [Suspect]
     Active Substance: ENALAPRIL
     Indication: CARDIAC FAILURE
     Dosage: 5 MG, BID
     Route: 048
     Dates: start: 20121114, end: 20140407
  7. ENALAPRIL [Suspect]
     Active Substance: ENALAPRIL
     Dosage: NO TREATMENT
     Route: 065
     Dates: start: 20140407, end: 20150318
  8. METOPROLOL. [Concomitant]
     Active Substance: METOPROLOL
     Indication: CARDIAC FAILURE CHRONIC
     Dosage: 50 MG, BID
     Route: 065
  9. ENCORTON [Concomitant]
     Active Substance: PREDNISONE
     Indication: CARDIAC FAILURE CHRONIC
     Dosage: 5 MG +2.5 MG
     Route: 065
  10. ALISKIREN [Suspect]
     Active Substance: ALISKIREN
     Dosage: NO TREATMENT
     Route: 065
     Dates: start: 20140407, end: 20150311

REACTIONS (1)
  - Oesophageal ulcer [Recovered/Resolved]

NARRATIVE: CASE EVENT DATE: 20150225
